FAERS Safety Report 11748486 (Version 3)
Quarter: 2016Q3

REPORT INFORMATION
  Report Type: Spontaneous
  Country: US (occurrence: US)
  Receive Date: 20151117
  Receipt Date: 20160801
  Transmission Date: 20161109
  Serious: Yes (Other)
  Sender: FDA-Public Use
  Company Number: US-JAZZ-2015-US-019024

PATIENT
  Age: 27 Year
  Sex: Female
  Weight: 76.64 kg

DRUGS (5)
  1. XYREM [Suspect]
     Active Substance: SODIUM OXYBATE
     Indication: CATAPLEXY
     Dosage: 2.5 G, BID
     Route: 048
     Dates: start: 20151111, end: 20151114
  2. PROVIGIL [Concomitant]
     Active Substance: MODAFINIL
     Indication: NARCOLEPSY
     Dosage: UNK
     Dates: start: 20151029
  3. XYREM [Suspect]
     Active Substance: SODIUM OXYBATE
     Dosage: 2 G, BID
     Route: 048
     Dates: start: 20151115
  4. ACETAZOLAMIDE. [Concomitant]
     Active Substance: ACETAZOLAMIDE
     Indication: INTRACRANIAL PRESSURE INCREASED
     Dosage: UNK
     Dates: start: 20150921
  5. XYREM [Suspect]
     Active Substance: SODIUM OXYBATE
     Indication: NARCOLEPSY
     Dosage: 2 G, BID
     Route: 048
     Dates: start: 20151104, end: 201511

REACTIONS (3)
  - Vomiting [Unknown]
  - Intracranial pressure increased [Not Recovered/Not Resolved]
  - Nausea [Not Recovered/Not Resolved]

NARRATIVE: CASE EVENT DATE: 20151105
